FAERS Safety Report 5164288-4 (Version None)
Quarter: 2006Q4

REPORT INFORMATION
  Report Type: 
  Country: None (occurrence: None)
  Receive Date: 20061129
  Receipt Date: 20061129
  Transmission Date: 20070319
  Serious: Yes (Life-Threatening, Hospitalization, Disabling)
  Sender: FDA-Public Use
  Company Number: None

PATIENT
  Age: 69 Year
  Sex: Female
  Weight: 86.1834 kg

DRUGS (2)
  1. PREMARIN [Suspect]
     Dosage: NORMAL DOSAGE ONCE DAILY INTRACISTER
     Route: 020
  2. PREMARIN [Concomitant]

REACTIONS (2)
  - BREAST CANCER FEMALE [None]
  - JOINT INJURY [None]
